FAERS Safety Report 4592648-9 (Version None)
Quarter: 2005Q1

REPORT INFORMATION
  Report Type: 
  Country: None (occurrence: None)
  Receive Date: 20050228
  Receipt Date: 20040727
  Transmission Date: 20050727
  Serious: Yes (Hospitalization)
  Sender: FDA-Public Use
  Company Number: JP-SOLVAY-00304002536

PATIENT
  Age: 14256 Day
  Sex: Male
  Weight: 89 kg

DRUGS (12)
  1. LUVOX [Suspect]
     Indication: DEPRESSION
     Dosage: DAILY DOSE: 75 MG. FREQUENCY:UNKNOWN
     Route: 048
     Dates: start: 20030827, end: 20030902
  2. LUVOX [Suspect]
     Dosage: DAILY DOSE: 225 MG. FREQUENCY:UNKNOWN
     Route: 048
     Dates: start: 20030910, end: 20040724
  3. MYSLEE [Concomitant]
     Indication: CHEMICAL POISONING
     Dosage: DAILY DOSE: 10 MG. FREQUENCY:UNKNOWN
     Route: 048
     Dates: start: 20030801, end: 20040724
  4. ROHYPNOL [Concomitant]
     Indication: CHEMICAL POISONING
     Dosage: DAILY DOSE: 2 MG. FREQUENCY:UNKNOWN
     Route: 048
     Dates: start: 20030801, end: 20040724
  5. ANAFRANIL [Suspect]
     Indication: DEPRESSION
     Dosage: DAILY DOSE: 105 MG. FREQUENCY:UNKNOWN
     Route: 048
     Dates: start: 20040218, end: 20040302
  6. ANAFRANIL [Suspect]
     Dosage: DAILY DOSE: 150 MG. FREQUENCY:UNKNOWN
     Route: 048
     Dates: start: 20040303, end: 20040724
  7. DEPAS [Concomitant]
     Indication: CHEMICAL POISONING
     Dosage: DAILY DOSE: 1.5 MG. FREQUENCY:UNKNOWN
     Route: 048
     Dates: start: 20030903, end: 20040724
  8. RISPERDAL [Suspect]
     Indication: CHEMICAL POISONING
     Dosage: DAILY DOSE: 4 MG. FREQUENCY:UNKNOWN
     Route: 048
     Dates: start: 20040218, end: 20040724
  9. WINTERMIN [Suspect]
     Indication: CHEMICAL POISONING
     Dosage: DAILY DOSE: 12.5 MG. FREQUENCY:UNKNOWN
     Route: 048
     Dates: start: 20030801, end: 20040724
  10. AKINETON [Concomitant]
     Indication: CHEMICAL POISONING
     Dosage: DAILY DOSE: 2 MG. FREQUENCY:UNKNOWN
     Route: 048
     Dates: start: 20040218, end: 20040724
  11. GLYBURIDE [Concomitant]
     Indication: DIABETES MELLITUS
     Dosage: DAILY DOSE: 5 MG. FREQUENCY:UNKNOWN
     Route: 048
     Dates: end: 20040724
  12. BASEN [Concomitant]
     Indication: DIABETES MELLITUS
     Dosage: DAILY DOSE: 0.4 MG. FREQUENCY:UNKNOWN
     Route: 048
     Dates: end: 20040724

REACTIONS (6)
  - ALANINE AMINOTRANSFERASE INCREASED [None]
  - ASPARTATE AMINOTRANSFERASE INCREASED [None]
  - BLOOD LACTATE DEHYDROGENASE INCREASED [None]
  - C-REACTIVE PROTEIN INCREASED [None]
  - NEUROLEPTIC MALIGNANT SYNDROME [None]
  - WHITE BLOOD CELL COUNT INCREASED [None]
